FAERS Safety Report 16295140 (Version 1)
Quarter: 2019Q2

REPORT INFORMATION
  Report Type: Spontaneous
  Country: US (occurrence: US)
  Receive Date: 20190509
  Receipt Date: 20190509
  Transmission Date: 20190711
  Serious: No
  Sender: FDA-Public Use
  Company Number: US-ROCHE-2223016

PATIENT
  Age: 64 Year
  Sex: Female

DRUGS (2)
  1. SYNTHROID [Concomitant]
     Active Substance: LEVOTHYROXINE SODIUM
     Route: 065
  2. ESBRIET [Suspect]
     Active Substance: PIRFENIDONE
     Indication: IDIOPATHIC PULMONARY FIBROSIS
     Route: 048
     Dates: start: 20181126, end: 20181126

REACTIONS (5)
  - Blood pressure increased [Unknown]
  - Flushing [Unknown]
  - Hypoaesthesia [Unknown]
  - Sinus congestion [Unknown]
  - Headache [Unknown]

NARRATIVE: CASE EVENT DATE: 20181126
